FAERS Safety Report 18397435 (Version 1)
Quarter: 2020Q4

REPORT INFORMATION
  Report Type: Spontaneous
  Country: CO (occurrence: CO)
  Receive Date: 20201019
  Receipt Date: 20201019
  Transmission Date: 20210114
  Serious: Yes (Hospitalization)
  Sender: FDA-Public Use
  Company Number: CO-ASTELLAS-2020US036645

PATIENT
  Age: 90 Year
  Sex: Male

DRUGS (1)
  1. XTANDI [Suspect]
     Active Substance: ENZALUTAMIDE
     Indication: CARCINOID TUMOUR OF THE PROSTATE
     Route: 065
     Dates: start: 20200727

REACTIONS (4)
  - Diarrhoea [Unknown]
  - Dehydration [Unknown]
  - Vomiting [Unknown]
  - Toxicity to various agents [Unknown]

NARRATIVE: CASE EVENT DATE: 202009
